FAERS Safety Report 4982536-8 (Version None)
Quarter: 2006Q1

REPORT INFORMATION
  Report Type: 
  Country: None (occurrence: None)
  Receive Date: 20060227
  Receipt Date: 20051110
  Transmission Date: 20060701
  Serious: Yes (Hospitalization)
  Sender: FDA-Public Use
  Company Number: WAES0511USA02244

PATIENT
  Age: 53 Year
  Sex: Female

DRUGS (6)
  1. ZOCOR [Suspect]
     Dosage: 20 MG;HS;PO
     Route: 048
     Dates: start: 20030501, end: 20031104
  2. ALLERGENIC EXTRACT [Concomitant]
  3. ANTIOXIDANTS (UNSPECIFIED) [Concomitant]
  4. CALCIUM (UNSPECIFIED) [Concomitant]
  5. COD LIVER OIL [Concomitant]
  6. PROTEIN (UNSPECIFIED) [Concomitant]

REACTIONS (4)
  - DERMATOMYOSITIS [None]
  - HEPATIC STEATOSIS [None]
  - INFLAMMATION [None]
  - RHABDOMYOLYSIS [None]
